FAERS Safety Report 8363075-3 (Version None)
Quarter: 2012Q2

REPORT INFORMATION
  Report Type: 
  Country: None (occurrence: None)
  Receive Date: 20120516
  Receipt Date: 20111017
  Transmission Date: 20120825
  Serious: No
  Sender: FDA-Public Use
  Company Number: US-ALEXION-A201101580

PATIENT
  Sex: Female

DRUGS (3)
  1. PNEUMOCOCCAL VACCINE [Suspect]
  2. MENINGOCOCCAL VACCINE [Suspect]
  3. SOLIRIS [Suspect]
     Indication: PAROXYSMAL NOCTURNAL HAEMOGLOBINURIA
     Dosage: UNK
     Route: 042

REACTIONS (1)
  - MUSCULOSKELETAL PAIN [None]
